FAERS Safety Report 10204377 (Version 1)
Quarter: 2014Q2

REPORT INFORMATION
  Report Type: Spontaneous
  Country: US (occurrence: US)
  Receive Date: 20140529
  Receipt Date: 20140529
  Transmission Date: 20141212
  Serious: Yes (Other)
  Sender: FDA-Public Use
  Company Number: US-ASTRAZENECA-2014SE35279

PATIENT
  Age: 52 Year
  Sex: Female
  Weight: 47.6 kg

DRUGS (5)
  1. NEXIUM [Suspect]
     Indication: PANCREATICODUODENECTOMY
     Route: 048
     Dates: start: 2013
  2. NEXIUM [Suspect]
     Indication: DYSPEPSIA
     Route: 048
     Dates: start: 2013
  3. ADVIL [Concomitant]
     Indication: PAIN
     Dosage: UNKNOWN BID TO TID
     Route: 048
  4. CREON [Concomitant]
     Indication: PANCREATIC DISORDER
     Dosage: UNKNOWN UNK
     Route: 048
     Dates: start: 2013
  5. CHEMOTHERAPY [Concomitant]
     Dates: start: 2013

REACTIONS (8)
  - Hepatic lesion [Not Recovered/Not Resolved]
  - Aphagia [Not Recovered/Not Resolved]
  - Abdominal pain upper [Not Recovered/Not Resolved]
  - Diarrhoea [Not Recovered/Not Resolved]
  - Flatulence [Unknown]
  - Vomiting [Not Recovered/Not Resolved]
  - Off label use [Not Recovered/Not Resolved]
  - Off label use [Not Recovered/Not Resolved]
